FAERS Safety Report 8352790-3 (Version None)
Quarter: 2012Q2

REPORT INFORMATION
  Report Type: 
  Country: None (occurrence: None)
  Receive Date: 20120511
  Receipt Date: 20120508
  Transmission Date: 20120825
  Serious: Yes (Death, Hospitalization)
  Sender: FDA-Public Use
  Company Number: US-ASTELLAS-2012US004423

PATIENT
  Age: 59 Year
  Sex: Male
  Weight: 85 kg

DRUGS (2)
  1. ERLOTINIB HYDROCHLORIDE [Suspect]
     Indication: ADENOCARCINOMA PANCREAS
     Dosage: 150 MG, UID/QD
     Route: 048
     Dates: start: 20120421, end: 20120429
  2. GDC-0449 [Suspect]
     Indication: ADENOCARCINOMA PANCREAS
     Dosage: 150 MG, UID/QD
     Route: 048
     Dates: start: 20120421, end: 20120429

REACTIONS (11)
  - SMALL INTESTINAL OBSTRUCTION [None]
  - DEHYDRATION [None]
  - NEOPLASM MALIGNANT [None]
  - INCORRECT DOSE ADMINISTERED [None]
  - HYPOALBUMINAEMIA [None]
  - BLOOD BILIRUBIN INCREASED [None]
  - ASCITES [None]
  - ABDOMINAL PAIN [None]
  - ABDOMINAL DISTENSION [None]
  - HYPONATRAEMIA [None]
  - CANDIDIASIS [None]
